FAERS Safety Report 8041975-1 (Version None)
Quarter: 2012Q1

REPORT INFORMATION
  Report Type: 
  Country: None (occurrence: None)
  Receive Date: 20120112
  Receipt Date: 20120109
  Transmission Date: 20120608
  Serious: Yes (Other)
  Sender: FDA-Public Use
  Company Number: PHEH2011US02606

PATIENT
  Sex: Female

DRUGS (11)
  1. ALKA SELTZER PLUS [Concomitant]
  2. DEXLANSOPRAZOLE [Concomitant]
     Dosage: 60 MG, UNK
  3. CHROMIUM CHLORIDE [Concomitant]
  4. EXFORGE HCT [Suspect]
     Dosage: 320/10/25 MG
  5. MEGABOUNY [Concomitant]
     Dosage: UNK UKN, UNK
  6. MULTI-VITAMINS [Concomitant]
     Dosage: UNK UKN, UNK
  7. EXFORGE HCT [Suspect]
     Dosage: 160 MG PER DAY
  8. BLOOD PRESSURE PILL [Concomitant]
     Dosage: UNK UKN, UNK
  9. IBUPROFEN (ADVIL) [Concomitant]
  10. DIOVAN [Suspect]
     Dosage: 160 MG PER DAY
  11. NAZAD [Concomitant]
     Dosage: 6 DF, UNK

REACTIONS (18)
  - SUICIDE ATTEMPT [None]
  - PULMONARY OEDEMA [None]
  - UTERINE HAEMORRHAGE [None]
  - PAIN [None]
  - UTERINE LEIOMYOMA [None]
  - CERVICAL CYST [None]
  - MENOPAUSAL SYMPTOMS [None]
  - BACK PAIN [None]
  - BLOOD PRESSURE FLUCTUATION [None]
  - SOMNOLENCE [None]
  - HIATUS HERNIA [None]
  - SCOLIOSIS [None]
  - FEELING ABNORMAL [None]
  - GASTRITIS EROSIVE [None]
  - CERVIX DISORDER [None]
  - ANAEMIA [None]
  - VERTIGO [None]
  - FATIGUE [None]
